FAERS Safety Report 26193074 (Version 1)
Quarter: 2025Q4

REPORT INFORMATION
  Report Type: Spontaneous
  Country: CA (occurrence: CA)
  Receive Date: 20251223
  Receipt Date: 20251223
  Transmission Date: 20260117
  Serious: Yes (Death, Life-Threatening, Hospitalization, Disabling, Congenital Anomaly, Other)
  Sender: NOVARTIS
  Company Number: CA-HALEON-2279909

PATIENT
  Age: 43 Year
  Sex: Female
  Weight: 70 kg

DRUGS (83)
  1. VOLTAROL [Suspect]
     Active Substance: DICLOFENAC SODIUM
     Indication: Rheumatoid arthritis
     Dosage: 50 MG(PATIENT ROA: UNKNOWN,  ACTI-GO)
     Route: 065
  2. VOLTAROL [Suspect]
     Active Substance: DICLOFENAC SODIUM
     Dosage: UNK
     Route: 058
  3. VOLTAROL [Suspect]
     Active Substance: DICLOFENAC SODIUM
     Dosage: 50 G(PATIENT ROA: UNKNOWN)
     Route: 065
  4. VOLTAROL [Suspect]
     Active Substance: DICLOFENAC SODIUM
     Dosage: PATIENT ROA: UNKNOWN
     Route: 065
  5. VOLTAROL [Suspect]
     Active Substance: DICLOFENAC SODIUM
     Dosage: PATIENT ROA: UNKNOWN
     Route: 065
  6. VOLTAROL [Suspect]
     Active Substance: DICLOFENAC SODIUM
     Dosage: UNK
     Route: 048
  7. VOLTAROL [Suspect]
     Active Substance: DICLOFENAC SODIUM
     Dosage: 225 MG
     Route: 048
  8. VOLTAREN [Suspect]
     Active Substance: DICLOFENAC SODIUM
     Indication: Product used for unknown indication
     Dosage: UNK(PATIENT ROA: UNKNOWN)
     Route: 065
  9. VOLTAREN [Suspect]
     Active Substance: DICLOFENAC SODIUM
     Dosage: UNK(PATIENT ROA: UNKNOWN)
     Route: 065
  10. VOLTAREN [Suspect]
     Active Substance: DICLOFENAC SODIUM
     Dosage: 50 MG(PATIENT ROA: UNKNOWN)
     Route: 065
  11. VOLTAREN [Suspect]
     Active Substance: DICLOFENAC SODIUM
     Indication: Rheumatoid arthritis
     Dosage: 500 MG, QD(EXPRESS,DOSE FORM: UNKNOWNPATIENT ROA: UNKNOWN)
     Route: 065
  12. VOLTAREN [Suspect]
     Active Substance: DICLOFENAC SODIUM
     Dosage: 50 G(DOSE FORM: UNKNOWNPATIENT ROA: UNKNOWN)
     Route: 065
  13. VOLTAREN [Suspect]
     Active Substance: DICLOFENAC SODIUM
     Dosage: UNK(DOSE FORM: UNKNOWN)
     Route: 058
  14. VOLTAREN [Suspect]
     Active Substance: DICLOFENAC SODIUM
     Dosage: UNK(DOSE FORM: UNKNOWNPATIENT ROA: UNKNOWN)
     Route: 065
  15. VOLTAREN [Suspect]
     Active Substance: DICLOFENAC SODIUM
     Dosage: 50 MG(DOSE FORM: UNKNOWNPATIENT ROA: UNKNOWN)
     Route: 065
  16. VOLTAREN [Suspect]
     Active Substance: DICLOFENAC SODIUM
     Dosage: 50 MG(DOSE FORM: UNKNOWN)
     Route: 048
  17. VOLTAREN [Suspect]
     Active Substance: DICLOFENAC SODIUM
     Dosage: 50 MG(DOSE FORM: UNKNOWNPATIENT ROA: UNKNOWN)
     Route: 065
  18. VOLTAREN [Suspect]
     Active Substance: DICLOFENAC SODIUM
     Dosage: UNK(DOSE FORM: UNKNOWNPATIENT ROA: UNKNOWN)
     Route: 065
  19. VOLTAREN [Suspect]
     Active Substance: DICLOFENAC SODIUM
     Dosage: UNK(DOSE FORM: UNKNOWN)
     Route: 048
  20. VOLTAREN [Suspect]
     Active Substance: DICLOFENAC SODIUM
     Dosage: UNK(DOSE FORM: UNKNOWNPATIENT ROA: UNKNOWN)
     Route: 065
  21. VOLTAREN [Suspect]
     Active Substance: DICLOFENAC SODIUM
     Dosage: 50 MG(DOSE FORM: UNKNOWN)
     Route: 048
  22. VOLTAREN [Suspect]
     Active Substance: DICLOFENAC SODIUM
     Dosage: 50 MG(DOSE FORM: UNKNOWNPATIENT ROA: UNKNOWN)
     Route: 065
  23. VOLTAREN [Suspect]
     Active Substance: DICLOFENAC SODIUM
     Dosage: 50 MG(DOSE FORM: UNKNOWNPATIENT ROA: UNKNOWN)
     Route: 065
  24. VOLTAREN [Suspect]
     Active Substance: DICLOFENAC SODIUM
     Dosage: 100 MG(DOSE FORM: UNKNOWNPATIENT ROA: UNKNOWN)
     Route: 065
  25. VOLTAREN [Suspect]
     Active Substance: DICLOFENAC SODIUM
     Dosage: 50 MG, QD(DOSE FORM: UNKNOWNPATIENT ROA: UNKNOWN)
     Route: 065
  26. ERELZI [Suspect]
     Active Substance: ETANERCEPT-SZZS
     Indication: Rheumatoid arthritis
     Dosage: 50 MG, QW
     Route: 058
  27. ERELZI [Suspect]
     Active Substance: ETANERCEPT-SZZS
     Dosage: UNK
     Route: 058
  28. ERELZI [Suspect]
     Active Substance: ETANERCEPT-SZZS
     Dosage: UNK(PATIENT ROA: UNKNOWN)
     Route: 065
  29. HYRIMOZ [Suspect]
     Active Substance: ADALIMUMAB-ADAZ
     Indication: Rheumatoid arthritis
     Dosage: 20 MG(DOSE FORM: SOLUTION FOR INJECTION)
     Route: 058
  30. HYRIMOZ [Suspect]
     Active Substance: ADALIMUMAB-ADAZ
     Indication: Psoriatic arthropathy
     Dosage: 3011.2 MG(DOSE FORM: SOLUTION FOR INJECTION)
     Route: 048
  31. HYRIMOZ [Suspect]
     Active Substance: ADALIMUMAB-ADAZ
     Dosage: 40 MG(DOSE FORM: SOLUTION FOR INJECTION)
     Route: 058
  32. HYRIMOZ [Suspect]
     Active Substance: ADALIMUMAB-ADAZ
     Dosage: UNK(DOSE FORM: SOLUTION FOR INJECTION)
     Route: 058
  33. HYRIMOZ [Suspect]
     Active Substance: ADALIMUMAB-ADAZ
     Dosage: 40 MG(DOSE FORM: SOLUTION FOR INJECTION)
     Route: 048
  34. HYRIMOZ [Suspect]
     Active Substance: ADALIMUMAB-ADAZ
     Dosage: UNK(DOSE FORM: SOLUTION SUBCUTANEOUS  )
     Route: 058
  35. OXYCODONE [Suspect]
     Active Substance: OXYCODONE
     Indication: Product used for unknown indication
     Dosage: 6 MG, QD(PATIENT ROA: UNKNOWN0
     Route: 065
  36. OXYCODONE [Suspect]
     Active Substance: OXYCODONE
     Dosage: UNK(PATIENT ROA: INTRAVENOUS (NOT OTHERWISE SPECIFIED))
     Route: 042
  37. OXYCODONE [Suspect]
     Active Substance: OXYCODONE
     Dosage: UNK(PATIENT ROA: UNKNOWN, UNKNOWN FORMULATION)
     Route: 065
  38. ALENDRONATE SODIUM [Suspect]
     Active Substance: ALENDRONATE SODIUM
     Indication: Rheumatoid arthritis
     Dosage: UNK(DOSE FORM: UNKNOWNPATIENT ROA: UNKNOWN)
     Route: 065
  39. ALENDRONATE SODIUM [Suspect]
     Active Substance: ALENDRONATE SODIUM
     Dosage: 20 MG(DOSE FORM: UNKNOWN)
     Route: 048
  40. ALENDRONATE SODIUM [Suspect]
     Active Substance: ALENDRONATE SODIUM
     Dosage: 30 MG(DOSE FORM: UNKNOWN)
     Route: 048
  41. ALENDRONATE SODIUM [Suspect]
     Active Substance: ALENDRONATE SODIUM
     Dosage: UNK(DOSE FORM: UNKNOWNPATIENT ROA: UNKNOWN)
     Route: 065
  42. ALENDRONATE SODIUM [Suspect]
     Active Substance: ALENDRONATE SODIUM
     Dosage: UNK(DOSE FORM: UNKNOWN)
     Route: 016
  43. ALENDRONATE SODIUM [Suspect]
     Active Substance: ALENDRONATE SODIUM
     Dosage: 2000 MG, QD(DOSE FORM: UNKNOWN)
     Route: 048
  44. ALENDRONATE SODIUM [Suspect]
     Active Substance: ALENDRONATE SODIUM
     Dosage: 20 MG(DOSE FORM: UNKNOWN)
     Route: 048
  45. DICLOFENAC [Suspect]
     Active Substance: DICLOFENAC
     Indication: Rheumatoid arthritis
     Dosage: UNK
     Route: 048
  46. LEFLUNOMIDE [Suspect]
     Active Substance: LEFLUNOMIDE
     Indication: Rheumatoid arthritis
     Dosage: 20 MG
     Route: 048
  47. LEFLUNOMIDE [Suspect]
     Active Substance: LEFLUNOMIDE
     Dosage: UNK(PATIENT ROA: UNKNOWN)
     Route: 065
  48. LEFLUNOMIDE [Suspect]
     Active Substance: LEFLUNOMIDE
     Dosage: 20 MG, QD(PATIENT ROA: UNKNOWN)
     Route: 065
  49. LEFLUNOMIDE [Suspect]
     Active Substance: LEFLUNOMIDE
     Dosage: 1 DOSAGE FORM
     Route: 048
  50. LEFLUNOMIDE [Suspect]
     Active Substance: LEFLUNOMIDE
     Dosage: 10 DOSAGE FORM, QD
     Route: 048
  51. LEFLUNOMIDE [Suspect]
     Active Substance: LEFLUNOMIDE
     Dosage: 20 MG
     Route: 065
  52. MYCOPHENOLATE MOFETIL [Suspect]
     Active Substance: MYCOPHENOLATE MOFETIL
     Indication: Rheumatoid arthritis
     Dosage: 20 MG(DOSE FORM: UNKNOWNPATIENT ROA: UNKNOWN)
     Route: 065
  53. MYCOPHENOLATE MOFETIL [Suspect]
     Active Substance: MYCOPHENOLATE MOFETIL
     Dosage: UNK (CAPSULE)
     Route: 065
  54. COSENTYX [Suspect]
     Active Substance: SECUKINUMAB
     Indication: Rheumatoid arthritis
     Dosage: UNK(PATIENT ROA: UNKNOWN)
     Route: 065
  55. COSENTYX [Suspect]
     Active Substance: SECUKINUMAB
     Indication: Psoriatic arthropathy
     Dosage: UNK(PATIENT ROA: UNKNOWN)
     Route: 065
  56. COSENTYX [Suspect]
     Active Substance: SECUKINUMAB
     Dosage: UNK(PATIENT ROA: UNKNOWN)
     Route: 065
  57. COSENTYX [Suspect]
     Active Substance: SECUKINUMAB
     Dosage: UNK(PATIENT ROA: UNKNOWN)
     Route: 065
  58. ERENUMAB [Suspect]
     Active Substance: ERENUMAB
     Indication: Migraine
     Dosage: UNK(AOOE, PATIENT ROA: UNKNOWN)
     Route: 065
  59. ERENUMAB [Suspect]
     Active Substance: ERENUMAB
     Dosage: UNK
     Route: 058
  60. QUETIAPINE FUMARATE [Suspect]
     Active Substance: QUETIAPINE FUMARATE
     Indication: Product used for unknown indication
     Dosage: UNK
     Route: 048
  61. QUETIAPINE FUMARATE [Suspect]
     Active Substance: QUETIAPINE FUMARATE
     Dosage: UNK (PATIENT ROA: UNKNOWN, UNKNOWN FORMULATION)
     Route: 065
  62. RITUXIMAB [Suspect]
     Active Substance: RITUXIMAB
     Indication: Rheumatoid arthritis
     Dosage: 265 MG(PATIENT ROA: INTRAVENOUS (NOT OTHERWISE SPECIFIED))
     Route: 042
  63. RITUXIMAB [Suspect]
     Active Substance: RITUXIMAB
     Dosage: UNK(DOSE FORM: UNKNOWNPATIENT ROA: INTRAVENOUS (NOT OTHERWISE SPECIFIED))
     Route: 042
  64. RITUXIMAB [Suspect]
     Active Substance: RITUXIMAB
     Dosage: UNK(DOSE FORM: UNKNOWNPATIENT ROA: INTRAVENOUS (NOT OTHERWISE SPECIFIED))
     Route: 042
  65. RITUXIMAB [Suspect]
     Active Substance: RITUXIMAB
     Dosage: UNK(DOSE FORM: UNKNOWN)
     Route: 058
  66. RITUXIMAB [Suspect]
     Active Substance: RITUXIMAB
     Dosage: UNK(DOSE FORM: UNKNOWN)
     Route: 016
  67. RITUXIMAB [Suspect]
     Active Substance: RITUXIMAB
     Dosage: UNK(DOSE FORM: UNKNOWNPATIENT ROA: UNKNOWN)
     Route: 065
  68. RITUXIMAB [Suspect]
     Active Substance: RITUXIMAB
     Dosage: UNK(DOSE FORM: UNKNOWN)
     Route: 048
  69. RITUXIMAB [Suspect]
     Active Substance: RITUXIMAB
     Dosage: 365 MG(DOSE FORM: UNKNOWNPATIENT ROA: UNKNOWN)
     Route: 065
  70. RITUXIMAB [Suspect]
     Active Substance: RITUXIMAB
     Dosage: UNK(DOSE FORM: UNKNOWNPATIENT ROA: INTRAVENOUS (NOT OTHERWISE SPECIFIED))
     Route: 042
  71. ALENDRONATE SODIUM [Suspect]
     Active Substance: ALENDRONATE SODIUM
     Indication: Rheumatoid arthritis
     Dosage: 40 MG
     Route: 058
  72. ALENDRONATE SODIUM [Suspect]
     Active Substance: ALENDRONATE SODIUM
     Dosage: UNK
     Route: 048
  73. ERELZI [Suspect]
     Active Substance: ETANERCEPT-SZZS
     Indication: Rheumatoid arthritis
     Dosage: 50 MG(DOSE FORM: NOT SPECIFIED)
     Route: 058
  74. ERELZI [Suspect]
     Active Substance: ETANERCEPT-SZZS
     Dosage: 50 MG(DOSE FORM: UNKNOWNPATIENT ROA: UNKNOWN)
     Route: 065
  75. VOLTAREN [Suspect]
     Active Substance: DICLOFENAC SODIUM
     Indication: Product used for unknown indication
     Dosage: 50 MG(DOSE FORM: NOT SPECIFIEDPATIENT ROA: OPHTHALMIC)
     Route: 047
  76. DICLOFENAC [Suspect]
     Active Substance: DICLOFENAC
     Indication: Product used for unknown indication
     Dosage: UNK(DOSE FORM: UNKNOWNPATIENT ROA: UNKNOWN)
     Route: 065
  77. DICLOFENAC [Suspect]
     Active Substance: DICLOFENAC
     Dosage: 50 MG(PATIENT ROA: UNKNOWN)
     Route: 065
  78. DICLOFENAC [Suspect]
     Active Substance: DICLOFENAC
     Dosage: DOSE FORM: UNKNOWNPATIENT ROA: UNKNOWN
     Route: 065
  79. DICLOFENAC [Suspect]
     Active Substance: DICLOFENAC
     Dosage: UNK(DOSE FORM: UNKNOWNPATIENT ROA: UNKNOWN)
     Route: 065
  80. DICLOFENAC [Suspect]
     Active Substance: DICLOFENAC
     Dosage: 50 MG(DOSE FORM: NOT SPECIFIEDPATIENT ROA: UNKNOWN)
     Route: 065
  81. DICLOFENAC [Suspect]
     Active Substance: DICLOFENAC
     Dosage: 50 MG(PATIENT ROA: UNKNOWN)
     Route: 065
  82. DICLOFENAC [Suspect]
     Active Substance: DICLOFENAC
     Dosage: UNK(PATIENT ROA: UNKNOWN)
     Route: 065
  83. DICLOFENAC [Suspect]
     Active Substance: DICLOFENAC
     Dosage: UNK(PATIENT ROA: UNKNOWN)
     Route: 065

REACTIONS (24)
  - Pulmonary fibrosis [Fatal]
  - Intentional product use issue [Fatal]
  - Off label use [Fatal]
  - Osteoarthritis [Fatal]
  - Osteoporosis [Fatal]
  - Pain [Fatal]
  - Pain in extremity [Fatal]
  - Pemphigus [Fatal]
  - Pericarditis [Fatal]
  - Peripheral swelling [Fatal]
  - Pneumonia [Fatal]
  - Prescribed overdose [Fatal]
  - Prescribed underdose [Fatal]
  - Pruritus [Fatal]
  - Pyrexia [Fatal]
  - Retinitis [Fatal]
  - Rheumatic fever [Fatal]
  - Oedema peripheral [Fatal]
  - Product use in unapproved indication [Fatal]
  - Product use issue [Fatal]
  - Psoriasis [Fatal]
  - Psoriatic arthropathy [Fatal]
  - Rash [Fatal]
  - Red blood cell sedimentation rate increased [Fatal]
